FAERS Safety Report 4294423-1 (Version None)
Quarter: 2004Q1

REPORT INFORMATION
  Report Type: 
  Country: None (occurrence: None)
  Receive Date: 20040211
  Receipt Date: 20040122
  Transmission Date: 20041129
  Serious: Yes (Other)
  Sender: FDA-Public Use
  Company Number: USA040157272

PATIENT
  Age: 14 Year
  Sex: Female

DRUGS (3)
  1. PROZAC [Suspect]
     Indication: DEPRESSION
     Dosage: 20 MG/2 DAY
     Dates: start: 19940420
  2. BUSPAR [Concomitant]
  3. THORAZINE [Concomitant]

REACTIONS (1)
  - HALLUCINATION, VISUAL [None]
